APPROVED DRUG PRODUCT: PEMOLINE
Active Ingredient: PEMOLINE
Strength: 18.75MG
Dosage Form/Route: TABLET;ORAL
Application: A075287 | Product #001
Applicant: WATSON LABORATORIES INC
Approved: Jun 13, 2001 | RLD: No | RS: No | Type: DISCN